FAERS Safety Report 16782107 (Version 3)
Quarter: 2019Q4

REPORT INFORMATION
  Report Type: Spontaneous
  Country: CO (occurrence: CO)
  Receive Date: 20190906
  Receipt Date: 20191019
  Transmission Date: 20200122
  Serious: Yes (Other)
  Sender: FDA-Public Use
  Company Number: PHHY2019CO206526

PATIENT
  Sex: Male

DRUGS (1)
  1. TEGRETOL [Suspect]
     Active Substance: CARBAMAZEPINE
     Indication: CRANIOCEREBRAL INJURY
     Dosage: 1 DF, UNK
     Route: 065

REACTIONS (3)
  - Product colour issue [Unknown]
  - Seizure [Unknown]
  - Product use in unapproved indication [Unknown]
